FAERS Safety Report 11633311 (Version 2)
Quarter: 2015Q4

REPORT INFORMATION
  Report Type: Report from Study
  Country: JP (occurrence: JP)
  Receive Date: 20151015
  Receipt Date: 20151020
  Transmission Date: 20160304
  Serious: Yes (Other)
  Sender: FDA-Public Use
  Company Number: JP-PFIZER INC-2015264826

PATIENT
  Age: 71 Year
  Sex: Male
  Weight: 60.5 kg

DRUGS (6)
  1. ALEVIATIN [Concomitant]
     Active Substance: PHENYTOIN SODIUM
     Indication: EPILEPSY
     Dosage: 200 MG, DAILY
     Route: 048
     Dates: start: 20140323
  2. MYSLEE [Concomitant]
     Active Substance: ZOLPIDEM TARTRATE
     Dosage: 1 DF, UNK
     Route: 048
  3. SOMELIN [Concomitant]
     Active Substance: HALOXAZOLAM
     Dosage: 1 DF, UNK
     Route: 048
  4. FOSPHENYTOIN SODIUM. [Suspect]
     Active Substance: FOSPHENYTOIN SODIUM
     Indication: STATUS EPILEPTICUS
     Dosage: 12 MG/KG, UNK
     Dates: start: 20140322
  5. SENIRAN [Concomitant]
     Active Substance: BROMAZEPAM
     Dosage: 1 DF, UNK
     Route: 048
  6. REFLEX [Concomitant]
     Active Substance: MIRTAZAPINE
     Dosage: 2 DF, UNK
     Route: 048

REACTIONS (1)
  - Drug eruption [Recovered/Resolved]

NARRATIVE: CASE EVENT DATE: 20140331
